FAERS Safety Report 22038814 (Version 2)
Quarter: 2025Q3

REPORT INFORMATION
  Report Type: Spontaneous
  Country: EU (occurrence: EU)
  Receive Date: 20230227
  Receipt Date: 20250924
  Transmission Date: 20251021
  Serious: Yes (Life-Threatening, Hospitalization, Other)
  Sender: ALKEM
  Company Number: None

PATIENT
  Age: 55 Year
  Sex: Male

DRUGS (2)
  1. DRONABINOL [Suspect]
     Active Substance: DRONABINOL
     Indication: Neuralgia
     Route: 065
  2. DRONABINOL [Suspect]
     Active Substance: DRONABINOL
     Route: 048
     Dates: start: 20221205, end: 20221205

REACTIONS (4)
  - Suicide attempt [Unknown]
  - Poisoning deliberate [Recovered/Resolved]
  - Psychomotor skills impaired [Recovered/Resolved]
  - Vomiting [Recovered/Resolved]

NARRATIVE: CASE EVENT DATE: 20221205
